FAERS Safety Report 9803210 (Version 2)
Quarter: 2014Q3

REPORT INFORMATION
  Report Type: Spontaneous
  Country: US (occurrence: US)
  Receive Date: 20140108
  Receipt Date: 20140710
  Transmission Date: 20150326
  Serious: No
  Sender: FDA-Public Use
  Company Number: US-PFIZER INC-2014001922

PATIENT
  Age: 60 Year
  Sex: Female
  Weight: 56.69 kg

DRUGS (8)
  1. IBUPROFEN. [Concomitant]
     Active Substance: IBUPROFEN
     Dosage: UNK, DAILY
  2. METOPROLOL [Concomitant]
     Active Substance: METOPROLOL
     Dosage: 12.5 MG, 1X/DAY
  3. ZYVOX [Suspect]
     Active Substance: LINEZOLID
     Indication: STAPHYLOCOCCAL INFECTION
     Dosage: 600 MG, 2X/DAY
     Route: 048
     Dates: start: 20140101, end: 20140102
  4. CLONAZEPAM. [Concomitant]
     Active Substance: CLONAZEPAM
     Indication: ANXIETY
     Dosage: UNK, AS NEEDED
  5. VITAMIN D [Concomitant]
     Active Substance: CHOLECALCIFEROL
     Indication: VITAMIN D DEFICIENCY
     Dosage: UNK
  6. OXYCODONE [Concomitant]
     Active Substance: OXYCODONE
     Indication: PAIN
     Dosage: UNK, AS NEEDED
  7. TYLENOL PM [Concomitant]
     Active Substance: ACETAMINOPHEN\DIPHENHYDRAMINE
     Indication: SINUS DISORDER
  8. TYLENOL PM [Concomitant]
     Active Substance: ACETAMINOPHEN\DIPHENHYDRAMINE
     Indication: SLEEP DISORDER
     Dosage: UNK

REACTIONS (18)
  - Feeling abnormal [Unknown]
  - Chills [Recovered/Resolved]
  - Dizziness [Recovered/Resolved]
  - Pyrexia [Recovered/Resolved]
  - Hypersensitivity [Recovered/Resolved]
  - Paraesthesia [Recovered/Resolved]
  - Pain [Recovered/Resolved]
  - Burning feet syndrome [Recovered/Resolved]
  - Dysgeusia [Recovered/Resolved]
  - Blood pressure increased [Recovered/Resolved]
  - Visual impairment [Recovered/Resolved]
  - Asthenia [Recovered/Resolved]
  - Headache [Recovered/Resolved]
  - Nausea [Recovered/Resolved]
  - Vision blurred [Recovered/Resolved]
  - Rash [Recovered/Resolved]
  - Malaise [Recovered/Resolved]
  - Thinking abnormal [Recovered/Resolved]

NARRATIVE: CASE EVENT DATE: 201401
